FAERS Safety Report 19074871 (Version 2)
Quarter: 2021Q2

REPORT INFORMATION
  Report Type: Spontaneous
  Country: IT (occurrence: IT)
  Receive Date: 20210330
  Receipt Date: 20210405
  Transmission Date: 20210717
  Serious: Yes (Hospitalization, Other)
  Sender: FDA-Public Use
  Company Number: IT-PFIZER INC-2021314621

PATIENT
  Age: 62 Year
  Sex: Male

DRUGS (2)
  1. NIVOLUMAB [Concomitant]
     Active Substance: NIVOLUMAB
     Dosage: 240 MG BIWEEKLY
     Dates: start: 201905, end: 2019
  2. METHYLPREDNISOLONE. [Suspect]
     Active Substance: METHYLPREDNISOLONE
     Dosage: 64 MG, DAILY
     Dates: start: 2019, end: 2019

REACTIONS (5)
  - Diabetes mellitus [Recovering/Resolving]
  - Oral fungal infection [Recovered/Resolved]
  - Blood thyroid stimulating hormone decreased [Unknown]
  - Dehydration [Recovering/Resolving]
  - Drug ineffective [Unknown]

NARRATIVE: CASE EVENT DATE: 2019
